FAERS Safety Report 11780944 (Version 1)
Quarter: 2015Q4

REPORT INFORMATION
  Report Type: Other
  Country: US (occurrence: US)
  Receive Date: 20151126
  Receipt Date: 20151126
  Transmission Date: 20160305
  Serious: Yes (Other)
  Sender: FDA-Public Use
  Company Number: US-DEXPHARM-20152270

PATIENT
  Age: 47 Year
  Sex: Female

DRUGS (2)
  1. ROSUVASTATIN [Interacting]
     Active Substance: ROSUVASTATIN
  2. OMEPRAZOLE. [Suspect]
     Active Substance: OMEPRAZOLE

REACTIONS (2)
  - Drug interaction [Recovering/Resolving]
  - Polymyositis [Recovering/Resolving]
